FAERS Safety Report 20121028 (Version 1)
Quarter: 2021Q4

REPORT INFORMATION
  Report Type: Other
  Country: None (occurrence: US)
  Receive Date: 20211127
  Receipt Date: 20211127
  Transmission Date: 20220303
  Serious: Yes (Death, Hospitalization)
  Sender: FDA-Public Use
  Company Number: US-BIOLOGICAL E. LTD-2122384

PATIENT
  Age: 58 Year
  Sex: Male

DRUGS (7)
  1. DAPTOMYCIN [Suspect]
     Active Substance: DAPTOMYCIN
     Indication: Enterococcal infection
     Route: 065
  2. LINEZOLID [Suspect]
     Active Substance: LINEZOLID
     Route: 065
  3. TIGECYCLINE [Suspect]
     Active Substance: TIGECYCLINE
     Route: 065
  4. TEDIZOLID [Suspect]
     Active Substance: TEDIZOLID
     Route: 042
  5. DALFOPRISTIN\QUINUPRISTIN [Suspect]
     Active Substance: DALFOPRISTIN\QUINUPRISTIN
     Route: 042
  6. GENTAMICIN [Suspect]
     Active Substance: GENTAMICIN
     Route: 042
  7. ORITAVANCIN [Suspect]
     Active Substance: ORITAVANCIN
     Route: 042

REACTIONS (2)
  - Drug resistance [Fatal]
  - Drug ineffective [Fatal]
